FAERS Safety Report 14331704 (Version 1)
Quarter: 2017Q4

REPORT INFORMATION
  Report Type: Report from Study
  Country: PH (occurrence: PH)
  Receive Date: 20171228
  Receipt Date: 20171228
  Transmission Date: 20180321
  Serious: Yes (Hospitalization)
  Sender: FDA-Public Use
  Company Number: PH-ASTELLAS-2010001297

PATIENT
  Age: 69 Year
  Sex: Male
  Weight: 41 kg

DRUGS (12)
  1. GEMCITABINE [Suspect]
     Active Substance: GEMCITABINE\GEMCITABINE HYDROCHLORIDE
     Dosage: FREQUENCY C3D8, FORM VIAL
     Route: 042
     Dates: start: 20100313
  2. GEMCITABINE [Suspect]
     Active Substance: GEMCITABINE\GEMCITABINE HYDROCHLORIDE
     Dosage: FREQUENCY: C4D8, FORM: VIAL
     Route: 042
     Dates: start: 20100615
  3. ACETYLCYSTEINE. [Concomitant]
     Active Substance: ACETYLCYSTEINE
     Indication: PRODUCT USED FOR UNKNOWN INDICATION
     Dosage: UNK UNK, UNKNOWN FREQ.
     Route: 065
  4. GEMCITABINE [Suspect]
     Active Substance: GEMCITABINE\GEMCITABINE HYDROCHLORIDE
     Dosage: 1800 MG, OTHER (FORM:VIAL.FREQUENCY:C4D1. DATE OF LAST DOSE PRIOR TO SAE:03 JUNE 2010. TEMPORARILY )
     Route: 042
     Dates: start: 20100407
  5. GEMCITABINE [Suspect]
     Active Substance: GEMCITABINE\GEMCITABINE HYDROCHLORIDE
     Dosage: 1738 MG, OTHER (FREQUENCY: C2D1, FORM:VIAL. LAST DOSE PRIOR TO SAE:24 MARCH 2010)
     Route: 042
     Dates: end: 20100505
  6. CARBOPLATIN. [Suspect]
     Active Substance: CARBOPLATIN
     Dosage: 413 MG, OTHER (C4D1.DATE OF LAST DOSE PRIOR TO SAE:03 JUNE 2010)
     Route: 042
     Dates: start: 20100225
  7. CARBOPLATIN. [Suspect]
     Active Substance: CARBOPLATIN
     Indication: NON-SMALL CELL LUNG CANCER
     Dosage: 421 MG, OTHER (C2D1, FORM:VIAL.LAST DOSE PRIOR TO SAE:24 MARCH 2010)
     Route: 042
  8. CARBOPLATIN. [Suspect]
     Active Substance: CARBOPLATIN
     Dosage: 414 MG, OTHER ( C3D1, LAST DOSE PRIOR TO SAE 28 APRIL 2010)
     Route: 042
  9. N-ACETYLCYSTEINE [Concomitant]
     Active Substance: ACETYLCYSTEINE
     Indication: PRODUCT USED FOR UNKNOWN INDICATION
     Dosage: UNK UNK, UNKNOWN FREQ.
     Route: 065
  10. ERLOTINIB [Suspect]
     Active Substance: ERLOTINIB
     Indication: NON-SMALL CELL LUNG CANCER
     Route: 048
     Dates: start: 20100311
  11. GEMCITABINE [Suspect]
     Active Substance: GEMCITABINE\GEMCITABINE HYDROCHLORIDE
     Indication: NON-SMALL CELL LUNG CANCER
     Dosage: 1800 MG, OTHER (C2D1, FORM:VIAL. LAST DOSE PRIOR TO SAE:24 MARCH 2010   )
     Route: 042
     Dates: start: 20100225, end: 20100406
  12. GEMCITABINE [Suspect]
     Active Substance: GEMCITABINE\GEMCITABINE HYDROCHLORIDE
     Route: 042
     Dates: end: 20100610

REACTIONS (1)
  - Anaemia [Recovering/Resolving]

NARRATIVE: CASE EVENT DATE: 20100406
